FAERS Safety Report 17252464 (Version 1)
Quarter: 2020Q1

REPORT INFORMATION
  Report Type: Spontaneous
  Country: US (occurrence: US)
  Receive Date: 20200109
  Receipt Date: 20200109
  Transmission Date: 20200409
  Serious: No
  Sender: FDA-Public Use
  Company Number: US-PFIZER INC-2020009417

PATIENT
  Age: 62 Year
  Sex: Female
  Weight: 63.49 kg

DRUGS (5)
  1. CALCIUM [Concomitant]
     Active Substance: CALCIUM
     Dosage: UNK,(CALCIUM 500 (1250) TAB CHEW)
  2. CALCIUM [Concomitant]
     Active Substance: CALCIUM
     Dosage: UNK,(CALCIUM 500 (1250) TAB CHEW)
  3. IBRANCE [Suspect]
     Active Substance: PALBOCICLIB
     Indication: BREAST CANCER FEMALE
     Dosage: 125 MG, CYCLIC,(DAILY FOR 21 OUT OF 28 DAYS)
     Route: 048
     Dates: start: 20200101
  4. MAGNESIUM [Concomitant]
     Active Substance: MAGNESIUM
     Dosage: 100 MG, UNK
  5. VITAMIN D2 [Concomitant]
     Active Substance: ERGOCALCIFEROL
     Dosage: 400 IU, UNK,(VITAMIN D2 400 UNIT TABLET)

REACTIONS (4)
  - Energy increased [Unknown]
  - Diarrhoea [Recovered/Resolved]
  - Hair disorder [Unknown]
  - Insomnia [Unknown]
